FAERS Safety Report 8475729-9 (Version None)
Quarter: 2012Q2

REPORT INFORMATION
  Report Type: 
  Country: None (occurrence: None)
  Receive Date: 20120628
  Receipt Date: 20120622
  Transmission Date: 20120825
  Serious: Yes (Other)
  Sender: FDA-Public Use
  Company Number: JP-GLAXOSMITHKLINE-B0810521A

PATIENT
  Age: 38 Year
  Sex: Female

DRUGS (5)
  1. LAMICTAL [Suspect]
     Indication: BIPOLAR DISORDER
     Dosage: 25MG PER DAY
     Route: 048
     Dates: start: 20120528, end: 20120605
  2. REFLEX (JAPAN) [Concomitant]
     Dosage: 15MG PER DAY
     Route: 048
     Dates: start: 20120611, end: 20120619
  3. LORAZEPAM [Concomitant]
     Dosage: .5MG PER DAY
     Route: 048
     Dates: start: 20120605, end: 20120619
  4. DIAZEPAM [Concomitant]
     Dosage: 2MG PER DAY
     Route: 048
     Dates: start: 20120605, end: 20120619
  5. PAXIL [Suspect]
     Indication: DEPRESSION
     Dosage: 10MG PER DAY
     Route: 048
     Dates: start: 20120605, end: 20120619

REACTIONS (8)
  - URINARY RETENTION [None]
  - PAIN IN EXTREMITY [None]
  - HYPOAESTHESIA [None]
  - OEDEMA [None]
  - DEPRESSIVE SYMPTOM [None]
  - OEDEMA PERIPHERAL [None]
  - CHROMATURIA [None]
  - RHABDOMYOLYSIS [None]
